FAERS Safety Report 9668454 (Version 1)
Quarter: 2013Q4

REPORT INFORMATION
  Report Type: Other
  Country: US (occurrence: US)
  Receive Date: 20131105
  Receipt Date: 20131105
  Transmission Date: 20140711
  Serious: Yes (Hospitalization)
  Sender: FDA-Public Use
  Company Number: US-MICRO LABS LIMITED-BB2013-01089

PATIENT
  Age: 16 Year
  Sex: Female

DRUGS (3)
  1. TRAMADOL + PARACETAMOL [Suspect]
     Indication: PRODUCT USED FOR UNKNOWN INDICATION
     Dosage: 25 TABLETS
     Route: 048
  2. ESCITALOPRAM [Suspect]
     Indication: PRODUCT USED FOR UNKNOWN INDICATION
     Dosage: 50 TABLETS
     Route: 065
  3. HYDROCODONE/PARACETAMOL [Suspect]
     Indication: PRODUCT USED FOR UNKNOWN INDICATION
     Route: 065

REACTIONS (9)
  - Electrocardiogram QRS complex prolonged [Recovered/Resolved]
  - Electrocardiogram QT interval [Recovered/Resolved]
  - Bundle branch block right [Recovered/Resolved]
  - Vomiting [Unknown]
  - Lethargy [Unknown]
  - Presyncope [Unknown]
  - Laceration [Unknown]
  - Laceration [Unknown]
  - Overdose [Unknown]
